FAERS Safety Report 4413976-3 (Version None)
Quarter: 2004Q3

REPORT INFORMATION
  Report Type: 
  Country: None (occurrence: None)
  Receive Date: 20040803
  Receipt Date: 20040721
  Transmission Date: 20050211
  Serious: Yes (Other)
  Sender: FDA-Public Use
  Company Number: FR-AMGEN-UK084236

PATIENT
  Sex: Female

DRUGS (3)
  1. ARANESP [Suspect]
     Indication: RENAL FAILURE CHRONIC
     Route: 058
     Dates: start: 20020701
  2. EPREX [Suspect]
     Route: 058
     Dates: start: 20020101, end: 20020701
  3. NEORECORMON [Suspect]
     Route: 058
     Dates: end: 20040101

REACTIONS (1)
  - ANTI-ERYTHROPOIETIN ANTIBODY POSITIVE [None]
